FAERS Safety Report 4720996-8 (Version None)
Quarter: 2005Q3

REPORT INFORMATION
  Report Type: 
  Country: None (occurrence: None)
  Receive Date: 20050720
  Receipt Date: 20040805
  Transmission Date: 20060218
  Serious: Yes (Hospitalization)
  Sender: FDA-Public Use
  Company Number: 2004048195

PATIENT
  Age: 56 Year
  Sex: Male
  Weight: 58 kg

DRUGS (3)
  1. GEODON [Suspect]
     Indication: SCHIZOPHRENIA
     Dosage: 160 MG (180 MG, 2 IN 1 D), ORAL
     Route: 048
     Dates: start: 20040330, end: 20040713
  2. ZALEPLON (ZALEPLON) [Concomitant]
  3. LORAZEPAM [Concomitant]

REACTIONS (1)
  - EPILEPSY [None]
